FAERS Safety Report 6072558-0 (Version None)
Quarter: 2009Q1

REPORT INFORMATION
  Report Type: 
  Country: None (occurrence: None)
  Receive Date: 20090210
  Receipt Date: 20090128
  Transmission Date: 20090719
  Serious: Yes (Other)
  Sender: FDA-Public Use
  Company Number: FR-ELI_LILLY_AND_COMPANY-FR200902000347

PATIENT
  Age: 74 Year
  Sex: Female

DRUGS (8)
  1. BYETTA [Suspect]
     Indication: TYPE 2 DIABETES MELLITUS
     Dosage: 5 UG, 2/D
     Route: 058
     Dates: start: 20090101, end: 20090127
  2. COAPROVEL [Concomitant]
     Indication: HYPERTENSION
  3. SELOKEN [Concomitant]
     Indication: HYPERTENSION
  4. LERCAN [Concomitant]
     Indication: HYPERTENSION
  5. ELISOR [Concomitant]
  6. AMARYL [Concomitant]
  7. AVANDIA [Concomitant]
  8. TOCO [Concomitant]

REACTIONS (3)
  - DIPLOPIA [None]
  - EXOPHTHALMOS [None]
  - VISION BLURRED [None]
